FAERS Safety Report 16308954 (Version 3)
Quarter: 2020Q3

REPORT INFORMATION
  Report Type: Spontaneous
  Country: US (occurrence: US)
  Receive Date: 20190514
  Receipt Date: 20200727
  Transmission Date: 20201102
  Serious: Yes (Other)
  Sender: FDA-Public Use
  Company Number: US-PFIZER INC-2018525411

PATIENT
  Age: 54 Year
  Sex: Female

DRUGS (2)
  1. XELJANZ XR [Suspect]
     Active Substance: TOFACITINIB CITRATE
     Indication: RHEUMATOID ARTHRITIS
  2. XELJANZ XR [Suspect]
     Active Substance: TOFACITINIB CITRATE
     Indication: RESPIRATORY TRACT INFECTION
     Dosage: 11 MG, 1X/DAY
     Dates: start: 201705

REACTIONS (4)
  - Infection [Unknown]
  - Wound [Unknown]
  - Nasopharyngitis [Unknown]
  - Infected cyst [Unknown]
